FAERS Safety Report 6355215-2 (Version None)
Quarter: 2009Q3

REPORT INFORMATION
  Report Type: 
  Country: None (occurrence: None)
  Receive Date: 20090914
  Receipt Date: 20090902
  Transmission Date: 20100115
  Serious: Yes (Other)
  Sender: FDA-Public Use
  Company Number: US-PFIZER INC-2009257839

PATIENT
  Sex: Female
  Weight: 60.317 kg

DRUGS (12)
  1. SUNITINIB MALATE [Suspect]
     Indication: METASTATIC RENAL CELL CARCINOMA
     Dosage: 50 MG, 1X/DAY
     Route: 048
     Dates: start: 20090714
  2. LEXAPRO [Concomitant]
     Indication: DEPRESSION
     Dosage: UNK
  3. MULTI-VITAMINS [Concomitant]
     Dosage: UNK
  4. CRESTOR [Concomitant]
     Dosage: 10 MG, UNK
  5. ZOMETA [Concomitant]
     Dosage: 4 MG, UNK
  6. CALCIUM WITH VITAMIN D [Concomitant]
     Dosage: UNK
  7. AMLODIPINE BESYLATE AND BENAZEPRIL HCL [Concomitant]
     Dosage: 5/2
  8. TYLENOL (CAPLET) [Concomitant]
     Dosage: UNK
  9. ZOFRAN [Concomitant]
     Dosage: 8 MG, UNK
  10. HYDROCODONE [Concomitant]
     Dosage: UNK
  11. POTASSIUM [Concomitant]
  12. LASIX [Concomitant]
     Dosage: 20 MG, UNK

REACTIONS (14)
  - ASTHENIA [None]
  - CONSTIPATION [None]
  - DEHYDRATION [None]
  - DIARRHOEA [None]
  - DYSGEUSIA [None]
  - FLUID RETENTION [None]
  - HYPERSOMNIA [None]
  - HYPERTENSION [None]
  - INCOHERENT [None]
  - MALAISE [None]
  - MEMORY IMPAIRMENT [None]
  - PRURITUS [None]
  - VOMITING [None]
  - WEIGHT INCREASED [None]
